FAERS Safety Report 23087276 (Version 1)
Quarter: 2023Q4

REPORT INFORMATION
  Report Type: Spontaneous
  Country: US (occurrence: US)
  Receive Date: 20231020
  Receipt Date: 20231020
  Transmission Date: 20240109
  Serious: No
  Sender: FDA-Public Use
  Company Number: US-GLENMARK PHARMACEUTICALS-2023GMK085002

PATIENT

DRUGS (1)
  1. ESTRADIOL [Suspect]
     Active Substance: ESTRADIOL
     Indication: Vulvovaginal dryness
     Dosage: ONE INSERT DAILY FOR TWO WEEKS, FOLLOWED BY ONE INSERT TWICE WEEKLY, ALL TO BE DONE AT THE SAME TIME
     Route: 067

REACTIONS (1)
  - Drug ineffective [Unknown]
